FAERS Safety Report 17867944 (Version 1)
Quarter: 2020Q2

REPORT INFORMATION
  Report Type: Spontaneous
  Country: CA (occurrence: CA)
  Receive Date: 20200606
  Receipt Date: 20200606
  Transmission Date: 20200714
  Serious: Yes (Other)
  Sender: FDA-Public Use
  Company Number: CA-ROCHE-2610864

PATIENT
  Sex: Female
  Weight: 68 kg

DRUGS (12)
  1. METHOTREXATE. [Suspect]
     Active Substance: METHOTREXATE
     Indication: PRODUCT USED FOR UNKNOWN INDICATION
     Route: 065
  2. DIPHENHYDRAMINE HYDROCHLORIDE. [Concomitant]
     Active Substance: DIPHENHYDRAMINE HYDROCHLORIDE
  3. FOLIC ACID. [Concomitant]
     Active Substance: FOLIC ACID
  4. METHYLPREDNISOLONE. [Concomitant]
     Active Substance: METHYLPREDNISOLONE
  5. NAPROXEN. [Concomitant]
     Active Substance: NAPROXEN
  6. RITUXIMAB. [Suspect]
     Active Substance: RITUXIMAB
     Indication: RHEUMATOID ARTHRITIS
     Route: 042
  7. NAPROXEN. [Suspect]
     Active Substance: NAPROXEN
     Indication: PRODUCT USED FOR UNKNOWN INDICATION
     Route: 065
  8. ACETAMINOPHEN. [Concomitant]
     Active Substance: ACETAMINOPHEN
  9. OMEGA 3 [DOCOSAHEXAENOIC ACID;EICOSAPENTAENOIC ACID] [Concomitant]
     Active Substance: DOCONEXENT\ICOSAPENT
  10. TRAVOPROST. [Concomitant]
     Active Substance: TRAVOPROST
  11. RABEPRAZOLE [Concomitant]
     Active Substance: RABEPRAZOLE
  12. TELMISARTAN. [Concomitant]
     Active Substance: TELMISARTAN

REACTIONS (7)
  - Weight increased [Recovered/Resolved]
  - Arthralgia [Recovered/Resolved]
  - Aspartate aminotransferase increased [Recovered/Resolved]
  - Cough [Recovered/Resolved]
  - Drug hypersensitivity [Recovered/Resolved]
  - Alanine aminotransferase increased [Recovered/Resolved]
  - Gastrointestinal bacterial infection [Recovered/Resolved]
